FAERS Safety Report 4588546-7 (Version None)
Quarter: 2005Q1

REPORT INFORMATION
  Report Type: 
  Country: None (occurrence: None)
  Receive Date: 20050216
  Receipt Date: 20050216
  Transmission Date: 20050727
  Serious: No
  Sender: FDA-Public Use
  Company Number: None

PATIENT
  Age: 74 Year
  Sex: Female

DRUGS (1)
  1. ZITHROMAX [Suspect]
     Indication: INFECTION
     Dosage: 250 MG   DAILY   ORAL
     Route: 048
     Dates: start: 20050130, end: 20050204

REACTIONS (1)
  - BLOOD SODIUM DECREASED [None]
